FAERS Safety Report 4564362-7 (Version None)
Quarter: 2005Q1

REPORT INFORMATION
  Report Type: 
  Country: None (occurrence: None)
  Receive Date: 20050126
  Receipt Date: 20050106
  Transmission Date: 20050727
  Serious: Yes (Death, Life-Threatening, Hospitalization)
  Sender: FDA-Public Use
  Company Number: EWC050142153

PATIENT
  Age: 72 Year
  Sex: Male
  Weight: 67 kg

DRUGS (3)
  1. GEMCITABINE HYDROCHLORIDE-IV (GEMCITABINE) [Suspect]
     Indication: NON-SMALL CELL LUNG CANCER
     Dosage: 1200 MG/M2/2 OTHER
     Dates: start: 20041130, end: 20041224
  2. CISPLATIN [Suspect]
     Indication: NON-SMALL CELL LUNG CANCER
     Dosage: 75 MG/M2/2 OTHER
     Dates: start: 20041130, end: 20041224
  3. DEXAMETHASONE [Concomitant]

REACTIONS (4)
  - LUNG INFILTRATION [None]
  - NEUTROPENIA [None]
  - PNEUMONIA [None]
  - RESPIRATORY FAILURE [None]
